FAERS Safety Report 22620399 (Version 1)
Quarter: 2023Q2

REPORT INFORMATION
  Report Type: Spontaneous
  Country: US (occurrence: None)
  Receive Date: 20230620
  Receipt Date: 20230620
  Transmission Date: 20230722
  Serious: Yes (Hospitalization)
  Sender: FDA-Public Use
  Company Number: US-FARMAPROD-202306-1701

PATIENT
  Age: 73 Year
  Sex: Male
  Weight: 101.24 kg

DRUGS (27)
  1. OXERVATE [Suspect]
     Active Substance: CENEGERMIN-BKBJ
     Indication: Neurotrophic keratopathy
     Route: 047
     Dates: start: 20220209, end: 20220406
  2. OXERVATE [Suspect]
     Active Substance: CENEGERMIN-BKBJ
     Indication: Ulcerative keratitis
     Route: 047
     Dates: start: 20230515
  3. NOVOLIN N [Concomitant]
     Active Substance: INSULIN HUMAN
     Dosage: VIAL
  4. NOVOLIN R [Concomitant]
     Active Substance: INSULIN HUMAN
     Dosage: VIAL
  5. MAPAP [Concomitant]
     Active Substance: ACETAMINOPHEN
  6. FISH OIL\OMEGA-3 FATTY ACIDS [Concomitant]
     Active Substance: FISH OIL\OMEGA-3 FATTY ACIDS
  7. DIVALPROEX SODIUM [Concomitant]
     Active Substance: DIVALPROEX SODIUM
     Dosage: DELAYED RELEASE
  8. COLCHICINE [Concomitant]
     Active Substance: COLCHICINE
  9. GABAPENTIN [Concomitant]
     Active Substance: GABAPENTIN
  10. GABAPENTIN [Concomitant]
     Active Substance: GABAPENTIN
  11. MIDODRINE HYDROCHLORIDE [Concomitant]
     Active Substance: MIDODRINE HYDROCHLORIDE
  12. FENOFIBRATE [Concomitant]
     Active Substance: FENOFIBRATE
  13. CETIRIZINE HCL [Concomitant]
     Active Substance: CETIRIZINE HYDROCHLORIDE
  14. ATORVASTATIN CALCIUM [Concomitant]
     Active Substance: ATORVASTATIN CALCIUM
  15. MODAFINIL [Concomitant]
     Active Substance: MODAFINIL
  16. FUROSEMIDE [Concomitant]
     Active Substance: FUROSEMIDE
  17. ASPIRIN [Concomitant]
     Active Substance: ASPIRIN
  18. FLUTICASONE PROPIONATE [Concomitant]
     Active Substance: FLUTICASONE PROPIONATE
  19. TYLENOL EXTRA STRENGTH [Concomitant]
     Active Substance: ACETAMINOPHEN
  20. ALLOPURINOL [Concomitant]
     Active Substance: ALLOPURINOL
  21. ZYRTEC [Concomitant]
     Active Substance: CETIRIZINE HYDROCHLORIDE
  22. PLAVIX [Concomitant]
     Active Substance: CLOPIDOGREL BISULFATE
  23. NOVOLIN 70/30 [Concomitant]
     Active Substance: INSULIN HUMAN
     Dosage: 70-30 70-30/ML VIAL
  24. LEVOFLOXACIN [Concomitant]
     Active Substance: LEVOFLOXACIN
  25. FISH OIL [Concomitant]
     Active Substance: FISH OIL
  26. ROSUVASTATIN CALCIUM [Concomitant]
     Active Substance: ROSUVASTATIN CALCIUM
  27. ARICEPT [Concomitant]
     Active Substance: DONEPEZIL HYDROCHLORIDE

REACTIONS (2)
  - Hospitalisation [Unknown]
  - Product dose omission issue [Unknown]

NARRATIVE: CASE EVENT DATE: 20230607
